FAERS Safety Report 16162521 (Version 6)
Quarter: 2020Q2

REPORT INFORMATION
  Report Type: Other
  Country: CA (occurrence: CA)
  Receive Date: 20190405
  Receipt Date: 20200521
  Transmission Date: 20200713
  Serious: Yes (Other)
  Sender: FDA-Public Use
  Company Number: CA-COLGATE PALMOLIVE COMPANY-20190300926

PATIENT

DRUGS (44)
  1. CHLORHEXIDINE UNSPECIFIED [Suspect]
     Active Substance: CHLORHEXIDINE
     Indication: GINGIVAL HYPERTROPHY
     Dosage: UNK
  2. APO SILDENAFIL [Suspect]
     Active Substance: SILDENAFIL CITRATE
     Dosage: 20 MG, 4X/DAY
  3. SILDENAFIL. [Suspect]
     Active Substance: SILDENAFIL
     Indication: FOETAL GROWTH RESTRICTION
     Dosage: UNK, 1 EVERY 6 HOURS
  4. SILDENAFIL. [Suspect]
     Active Substance: SILDENAFIL
     Dosage: 20 MG, 2 EVERY 1 DAY(S)
  5. NIFEDIPINE. [Suspect]
     Active Substance: NIFEDIPINE
     Dosage: 20 MG, 1X/DAY
     Route: 048
  6. NIFEDIPINE. [Suspect]
     Active Substance: NIFEDIPINE
     Dosage: 20 MG
     Route: 048
  7. NIFEDIPINE. [Suspect]
     Active Substance: NIFEDIPINE
     Dosage: 40 MG, 1X/DAY
  8. METHYLDOPA. [Suspect]
     Active Substance: METHYLDOPA
     Indication: HYPERTENSION
     Dosage: UNK
     Route: 048
  9. APO SILDENAFIL [Suspect]
     Active Substance: SILDENAFIL CITRATE
     Dosage: 20 MG, 3X/DAY
  10. SILDENAFIL. [Suspect]
     Active Substance: SILDENAFIL
     Dosage: UNK
  11. SILDENAFIL. [Suspect]
     Active Substance: SILDENAFIL
     Dosage: 40 MG, EVERY DAY
  12. SILDENAFIL. [Suspect]
     Active Substance: SILDENAFIL
     Dosage: 20 MG, 3 EVERY 1 DAY(S)
  13. NIFEDIPINE. [Suspect]
     Active Substance: NIFEDIPINE
     Dosage: 20 MG, 2 EVERY 1 DAY(S)
  14. INSULIN [Suspect]
     Active Substance: INSULIN NOS
     Indication: TYPE 2 DIABETES MELLITUS
     Dosage: UNK
     Route: 048
  15. SILDENAFIL. [Suspect]
     Active Substance: SILDENAFIL
     Dosage: 20 MG, 3 EVERY 1 DAY(S)
     Route: 048
  16. SILDENAFIL. [Suspect]
     Active Substance: SILDENAFIL
     Dosage: 20 MG, 1X/DAY
     Route: 048
  17. CHLORHEXIDINE GLUCONATE UNSPECIFIED [Suspect]
     Active Substance: CHLORHEXIDINE GLUCONATE
     Indication: GINGIVAL HYPERTROPHY
     Dosage: UNK
  18. DICLECTIN [Suspect]
     Active Substance: DOXYLAMINE SUCCINATE\PYRIDOXINE HYDROCHLORIDE
     Indication: PROPHYLAXIS
     Dosage: UNK
     Route: 048
  19. SILDENAFIL. [Suspect]
     Active Substance: SILDENAFIL
     Dosage: 20 MG, 4X/DAY
     Route: 048
  20. NIFEDIPINE. [Suspect]
     Active Substance: NIFEDIPINE
     Indication: HYPERTENSION
     Dosage: 20 MG, 3 EVERY 1 DAY(S)
     Route: 023
  21. NIFEDIPINE. [Suspect]
     Active Substance: NIFEDIPINE
     Dosage: 20 MG, 2 EVERY 1 DAY(S)
  22. NIFEDIPINE. [Suspect]
     Active Substance: NIFEDIPINE
     Dosage: UNK
  23. ERGOCALCIFEROL. [Suspect]
     Active Substance: ERGOCALCIFEROL
     Indication: PROPHYLAXIS
     Dosage: UNK
  24. VITAMINS NOS [Suspect]
     Active Substance: VITAMINS
     Indication: PROPHYLAXIS
     Dosage: UNK
  25. ACETYLSALICYLIC ACID [Suspect]
     Active Substance: ASPIRIN
     Indication: PROPHYLAXIS
     Dosage: UNK
  26. METFORMIN [Suspect]
     Active Substance: METFORMIN HYDROCHLORIDE
     Indication: TYPE 2 DIABETES MELLITUS
     Dosage: UNK
  27. SILDENAFIL. [Suspect]
     Active Substance: SILDENAFIL
     Dosage: 20 MG, 1 EVERY 6 HOUR(S)
     Route: 048
  28. SILDENAFIL. [Suspect]
     Active Substance: SILDENAFIL
     Dosage: 60, 1X/DAY
  29. SILDENAFIL. [Suspect]
     Active Substance: SILDENAFIL
     Dosage: 20 MG, 1 EVERY 8 HOUR(S)
     Route: 048
  30. SILDENAFIL. [Suspect]
     Active Substance: SILDENAFIL
     Dosage: 80 MILLIGRAM
     Route: 048
  31. NIFEDIPINE. [Suspect]
     Active Substance: NIFEDIPINE
     Dosage: 20 MG, 1X/DAY
  32. METHYLDOPA. [Suspect]
     Active Substance: METHYLDOPA
     Dosage: UNK
  33. APO SILDENAFIL [Suspect]
     Active Substance: SILDENAFIL CITRATE
     Indication: FOETAL GROWTH RESTRICTION
     Dosage: 20 MG, 2X/DAY
  34. SILDENAFIL. [Suspect]
     Active Substance: SILDENAFIL
     Dosage: 20 MG, 1 EVERY 6 HOUR(S) (^4 EVERY 1 DAYS^)
     Route: 048
  35. SILDENAFIL. [Suspect]
     Active Substance: SILDENAFIL
     Dosage: 20 MG, 6 EVERY 1 HOUR(S)
     Route: 048
  36. SILDENAFIL. [Suspect]
     Active Substance: SILDENAFIL
     Dosage: 40 MG, 1X/DAY
  37. SILDENAFIL. [Suspect]
     Active Substance: SILDENAFIL
     Dosage: 20 MG
     Route: 048
  38. NIFEDIPINE. [Suspect]
     Active Substance: NIFEDIPINE
     Dosage: UNK
  39. NIFEDIPINE. [Suspect]
     Active Substance: NIFEDIPINE
     Dosage: 60 MG, 1X/DAY
     Route: 023
  40. NIFEDIPINE. [Suspect]
     Active Substance: NIFEDIPINE
     Dosage: 120 MG, 1X/DAY
  41. ASPIRIN [ACETYLSALICYLIC ACID] [Suspect]
     Active Substance: ASPIRIN
     Dosage: UNK
  42. SILDENAFIL. [Suspect]
     Active Substance: SILDENAFIL
     Dosage: 60 MG, EVERY DAY
  43. SILDENAFIL. [Suspect]
     Active Substance: SILDENAFIL
     Dosage: 80 MG, 1X/DAY
     Route: 048
  44. NIFEDIPINE. [Suspect]
     Active Substance: NIFEDIPINE
     Dosage: 60 MG, 2 EVERY 1 DAY(S)

REACTIONS (3)
  - Premature delivery [Unknown]
  - Maternal exposure during pregnancy [Recovered/Resolved]
  - Off label use [Unknown]
